FAERS Safety Report 4892493-0 (Version None)
Quarter: 2006Q1

REPORT INFORMATION
  Report Type: 
  Country: None (occurrence: None)
  Receive Date: 20060125
  Receipt Date: 20060125
  Transmission Date: 20060701
  Serious: No
  Sender: FDA-Public Use
  Company Number: None

PATIENT
  Sex: Male
  Weight: 167.8309 kg

DRUGS (1)
  1. HYDROCODONE/APAP 7.5/500 QUALITEST [Suspect]
     Indication: PAIN
     Dosage: 1 OR 2 TABLETS 4X/DAY AS NEEDED PO
     Route: 048
     Dates: start: 20051125, end: 20060120

REACTIONS (3)
  - DRUG INEFFECTIVE [None]
  - PHARMACEUTICAL PRODUCT COMPLAINT [None]
  - POOR QUALITY DRUG ADMINISTERED [None]
